FAERS Safety Report 5366550-9 (Version None)
Quarter: 2007Q2

REPORT INFORMATION
  Report Type: 
  Country: None (occurrence: None)
  Receive Date: 20070622
  Receipt Date: 20070611
  Transmission Date: 20071010
  Serious: Yes (Other)
  Sender: FDA-Public Use
  Company Number: US-PFIZER INC-2007040475

PATIENT
  Sex: Female
  Weight: 61.7 kg

DRUGS (4)
  1. LIPITOR [Suspect]
     Indication: BLOOD CHOLESTEROL INCREASED
     Route: 048
  2. NORVASC [Concomitant]
     Indication: HYPERTENSION
  3. AVAPRO [Concomitant]
  4. CORGARD [Concomitant]

REACTIONS (3)
  - GAIT DISTURBANCE [None]
  - HYPOKINESIA [None]
  - MONOPLEGIA [None]
